FAERS Safety Report 9624724 (Version 2)
Quarter: 2013Q4

REPORT INFORMATION
  Report Type: Spontaneous
  Country: JP (occurrence: JP)
  Receive Date: 20131015
  Receipt Date: 20131015
  Transmission Date: 20140711
  Serious: Yes (Hospitalization, Other)
  Sender: FDA-Public Use
  Company Number: JP-PFIZER INC-2011043680

PATIENT
  Age: 67 Year
  Sex: Male

DRUGS (14)
  1. ENBREL [Suspect]
     Indication: RHEUMATOID ARTHRITIS
     Dosage: 25 MG, 2X/WEEK (0.5ML (TUESDAY AND FRIDAY))
     Route: 058
     Dates: start: 20100611, end: 20101104
  2. ENBREL [Suspect]
     Dosage: 25 MG, 3X/2WEEKS
     Route: 058
     Dates: start: 20101105, end: 20110120
  3. ENBREL [Suspect]
     Dosage: 50 MG, WEEKLY
     Route: 058
     Dates: start: 20110121
  4. RHEUMATREX [Suspect]
     Indication: RHEUMATOID ARTHRITIS
     Dosage: 6 MG, WEEKLY
     Route: 048
     Dates: start: 200906, end: 20110204
  5. AZULFIDINE EN [Suspect]
     Indication: RHEUMATOID ARTHRITIS
     Dosage: 500 MG, 2X/DAY
     Route: 048
     Dates: start: 200605
  6. HYPEN [Concomitant]
     Indication: RHEUMATOID ARTHRITIS
     Dosage: 200 MG, 2X/DAY
     Route: 048
     Dates: start: 200605
  7. PREDONINE [Concomitant]
     Indication: RHEUMATOID ARTHRITIS
     Dosage: 2.5 MG, 2X/DAY
     Route: 048
     Dates: start: 200605
  8. ADALAT [Concomitant]
     Indication: HYPERTENSION
     Dosage: 20 MG, 2X/DAY
     Route: 048
     Dates: start: 1998
  9. MAINTATE [Concomitant]
     Indication: HYPERTENSION
     Dosage: 5 MG, 1X/DAY
     Route: 048
     Dates: start: 1998
  10. MAINTATE [Concomitant]
     Indication: VENTRICULAR EXTRASYSTOLES
  11. OLMETEC [Concomitant]
     Dosage: 20 MG, 1X/DAY
     Route: 048
  12. FLUITRAN [Concomitant]
     Indication: HYPERTENSION
     Dosage: 2 MG, 1X/DAY
     Route: 048
     Dates: start: 1998
  13. URSO [Concomitant]
     Indication: CHOLELITHIASIS
     Dosage: 100 MG, 2X/DAY
     Route: 048
     Dates: start: 200606
  14. GASTER [Concomitant]
     Indication: GASTRITIS
     Dosage: 20 MG, 2X/DAY
     Dates: start: 200905

REACTIONS (4)
  - Enterocolitis haemorrhagic [Unknown]
  - Haemoglobin decreased [Unknown]
  - Rheumatoid arthritis [Unknown]
  - Joint arthroplasty [Unknown]
